FAERS Safety Report 9149517 (Version 2)
Quarter: 2013Q2

REPORT INFORMATION
  Report Type: Spontaneous
  Country: US (occurrence: US)
  Receive Date: 20130308
  Receipt Date: 20130409
  Transmission Date: 20140414
  Serious: Yes (Other)
  Sender: FDA-Public Use
  Company Number: US-ELI_LILLY_AND_COMPANY-US201302010351

PATIENT
  Sex: Male
  Weight: 109 kg

DRUGS (2)
  1. STRATTERA [Suspect]
     Indication: ATTENTION DEFICIT/HYPERACTIVITY DISORDER
     Dosage: UNK, UNKNOWN
     Dates: start: 20031215
  2. STRATTERA [Suspect]
     Dosage: 60 MG, QD
     Route: 048
     Dates: end: 20041112

REACTIONS (3)
  - Weight increased [Not Recovered/Not Resolved]
  - Drug ineffective [Recovered/Resolved]
  - Increased appetite [Unknown]
